FAERS Safety Report 5924024-8 (Version None)
Quarter: 2008Q4

REPORT INFORMATION
  Report Type: 
  Country: None (occurrence: None)
  Receive Date: 20081020
  Receipt Date: 20081010
  Transmission Date: 20090506
  Serious: Yes (Hospitalization, Other)
  Sender: FDA-Public Use
  Company Number: PHEH2008US08572

PATIENT
  Sex: Female
  Weight: 52.154 kg

DRUGS (5)
  1. RECLAST [Suspect]
     Indication: OSTEOPOROSIS POSTMENOPAUSAL
     Dosage: 5MG
     Route: 042
     Dates: start: 20080523
  2. CRESTOR [Concomitant]
     Dosage: 10 UNK, QD
     Dates: start: 20050507
  3. AMLODIPINE [Concomitant]
     Dosage: UNK
     Dates: start: 20080507
  4. METFORMIN HYDROCHLORIDE [Concomitant]
     Dosage: 500 MG, BID
  5. ISOSORBIDE [Concomitant]
     Dosage: 60 UNK, QD
     Dates: start: 20050507

REACTIONS (8)
  - ARTHRALGIA [None]
  - ASTHENIA [None]
  - CHEST PAIN [None]
  - HEADACHE [None]
  - HYPOACUSIS [None]
  - MYALGIA [None]
  - NAUSEA [None]
  - SWOLLEN TONGUE [None]
